FAERS Safety Report 7541305-5 (Version None)
Quarter: 2011Q2

REPORT INFORMATION
  Report Type: 
  Country: None (occurrence: None)
  Receive Date: 20110610
  Receipt Date: 20110601
  Transmission Date: 20111010
  Serious: Yes (Hospitalization)
  Sender: FDA-Public Use
  Company Number: JP-CELGENEUS-TAJPN-10-0735

PATIENT
  Sex: Female
  Weight: 57 kg

DRUGS (5)
  1. ABRAXANE [Suspect]
     Indication: BREAST CANCER METASTATIC
     Dosage: 400 MILLIGRAM
     Dates: start: 20101115, end: 20101115
  2. LANTUS [Concomitant]
     Indication: DIABETES MELLITUS
  3. OXYCONTIN [Concomitant]
     Route: 048
     Dates: start: 20101009
  4. ARIMIDEX [Concomitant]
     Indication: BREAST CANCER METASTATIC
     Route: 048
     Dates: start: 20080125, end: 20101115
  5. HUMALOG [Concomitant]
     Indication: DIABETES MELLITUS

REACTIONS (5)
  - GASTROINTESTINAL DISORDER [None]
  - WHITE BLOOD CELL COUNT DECREASED [None]
  - HYPERGLYCAEMIA [None]
  - NEUTROPHIL COUNT DECREASED [None]
  - DECREASED APPETITE [None]
